FAERS Safety Report 14711128 (Version 1)
Quarter: 2018Q2

REPORT INFORMATION
  Report Type: Spontaneous
  Country: SE (occurrence: SE)
  Receive Date: 20180403
  Receipt Date: 20180403
  Transmission Date: 20180711
  Serious: Yes (Other)
  Sender: FDA-Public Use
  Company Number: SE-PFIZER INC-2018133748

PATIENT
  Sex: Female
  Weight: 63 kg

DRUGS (3)
  1. GABAPENTIN. [Suspect]
     Active Substance: GABAPENTIN
     Indication: PAIN
     Dosage: 1200 MG, 3X/DAY
     Dates: start: 2015
  2. ATORVASTATIN [Concomitant]
     Active Substance: ATORVASTATIN
     Dosage: UNK
  3. ENALAPRIL [Concomitant]
     Active Substance: ENALAPRIL
     Dosage: UNK

REACTIONS (5)
  - Mental impairment [Recovering/Resolving]
  - Depressed mood [Recovering/Resolving]
  - Sleep disorder [Recovering/Resolving]
  - Anxiety [Recovering/Resolving]
  - Aggression [Recovered/Resolved]
